FAERS Safety Report 5688290-9 (Version None)
Quarter: 2008Q1

REPORT INFORMATION
  Report Type: 
  Country: None (occurrence: None)
  Receive Date: 20080331
  Receipt Date: 20080307
  Transmission Date: 20080703
  Serious: Yes (Death)
  Sender: FDA-Public Use
  Company Number: US-BAYER-200815200GPV

PATIENT

DRUGS (4)
  1. FLUDARABINE [Suspect]
     Indication: HAEMATOLOGICAL MALIGNANCY
     Route: 065
  2. CYCLOPHOSPHAMIDE [Suspect]
     Indication: HAEMATOLOGICAL MALIGNANCY
     Route: 065
  3. MEDI-507 [Suspect]
     Indication: HAEMATOLOGICAL MALIGNANCY
     Route: 065
  4. CYCLOSPORINE [Suspect]
     Indication: PROPHYLAXIS AGAINST GRAFT VERSUS HOST DISEASE
     Route: 065

REACTIONS (3)
  - ACUTE GRAFT VERSUS HOST DISEASE [None]
  - HAEMORRHAGE INTRACRANIAL [None]
  - PNEUMONITIS [None]
